FAERS Safety Report 6966109-3 (Version None)
Quarter: 2010Q3

REPORT INFORMATION
  Report Type: 
  Country: None (occurrence: None)
  Receive Date: 20100903
  Receipt Date: 20100823
  Transmission Date: 20110219
  Serious: Yes (Other)
  Sender: FDA-Public Use
  Company Number: PHHY2010US38387

PATIENT
  Sex: Female
  Weight: 68.6 kg

DRUGS (4)
  1. ZOMETA [Suspect]
     Indication: NON-HODGKIN'S LYMPHOMA STAGE IV
     Dosage: 4 MG/ 4 WEEKS
     Route: 042
     Dates: start: 20100520, end: 20100603
  2. ZOMETA [Suspect]
     Indication: METASTASES TO BONE
  3. CHEMOTHERAPEUTICS NOS [Concomitant]
     Dosage: UNK
  4. RITUXAN [Concomitant]
     Indication: LYMPHOMA
     Dosage: 638 MG PER WEEK
     Route: 042
     Dates: start: 20100514

REACTIONS (11)
  - ARTHRALGIA [None]
  - ARTHRITIS [None]
  - ASTHENIA [None]
  - BONE PAIN [None]
  - CHILLS [None]
  - GAIT DISTURBANCE [None]
  - GASTROOESOPHAGEAL REFLUX DISEASE [None]
  - INFLUENZA LIKE ILLNESS [None]
  - JOINT RANGE OF MOTION DECREASED [None]
  - JOINT SWELLING [None]
  - LIGAMENT RUPTURE [None]
